FAERS Safety Report 10657905 (Version 1)
Quarter: 2014Q4

REPORT INFORMATION
  Report Type: Spontaneous
  Country: DE (occurrence: DE)
  Receive Date: 20141217
  Receipt Date: 20141217
  Transmission Date: 20150529
  Serious: Yes (Other)
  Sender: FDA-Public Use
  Company Number: DE-SA-2014SA171569

PATIENT
  Age: 74 Year
  Sex: Male
  Weight: 104 kg

DRUGS (2)
  1. MULTAQ [Suspect]
     Active Substance: DRONEDARONE
     Indication: ATRIAL FIBRILLATION
     Route: 065
     Dates: start: 20141024, end: 20141124
  2. XARELTO [Concomitant]
     Active Substance: RIVAROXABAN
     Indication: ATRIAL FIBRILLATION
     Dosage: SEPARATE DOSAGES: IN 1 DAY

REACTIONS (8)
  - Nausea [Recovering/Resolving]
  - Arthralgia [Recovering/Resolving]
  - Dry mouth [Not Recovered/Not Resolved]
  - Abdominal pain upper [Recovering/Resolving]
  - Saliva altered [Recovering/Resolving]
  - Vomiting [Recovering/Resolving]
  - Chromaturia [Recovering/Resolving]
  - Hepatic enzyme increased [Recovering/Resolving]

NARRATIVE: CASE EVENT DATE: 20141103
